FAERS Safety Report 6033184-2 (Version None)
Quarter: 2009Q1

REPORT INFORMATION
  Report Type: 
  Country: None (occurrence: None)
  Receive Date: 20090109
  Receipt Date: 20081231
  Transmission Date: 20090719
  Serious: Yes (Hospitalization)
  Sender: FDA-Public Use
  Company Number: AU-MERCK-0901AUS00001

PATIENT
  Age: 80 Year
  Sex: Female

DRUGS (3)
  1. FOSAMAX [Suspect]
     Route: 048
     Dates: start: 20040101
  2. TELMISARTAN [Concomitant]
     Route: 065
  3. CALCIUM CARBONATE [Concomitant]
     Route: 065

REACTIONS (2)
  - FALL [None]
  - GASTROOESOPHAGEAL REFLUX DISEASE [None]
